FAERS Safety Report 6013892-X (Version None)
Quarter: 2008Q4

REPORT INFORMATION
  Report Type: 
  Country: None (occurrence: None)
  Receive Date: 20081219
  Receipt Date: 20081112
  Transmission Date: 20090506
  Serious: No
  Sender: FDA-Public Use
  Company Number: A0749020A

PATIENT
  Age: 58 Year
  Sex: Male

DRUGS (16)
  1. ADVAIR DISKUS 250/50 [Suspect]
     Indication: ASTHMA
     Dosage: 2SPR TWICE PER DAY
     Route: 055
  2. ADVAIR DISKUS 250/50 [Suspect]
     Route: 055
  3. ASPIRIN [Concomitant]
  4. ASCORBIC ACID [Concomitant]
  5. AVALIDE [Concomitant]
  6. METOPROLOL [Concomitant]
  7. METFORMIN HCL [Concomitant]
  8. ACIPHEX [Concomitant]
  9. SPIRONOLACTONE [Concomitant]
  10. LOVAZA [Concomitant]
  11. UNKNOWN MEDICATION [Concomitant]
  12. VITAMIN D [Concomitant]
  13. CLOPIDOGREL [Concomitant]
  14. CRESTOR [Concomitant]
  15. LEVEMIR [Concomitant]
  16. UNKNOWN MEDICATION [Concomitant]

REACTIONS (4)
  - DYSPNOEA [None]
  - FATIGUE [None]
  - OROPHARYNGEAL PAIN [None]
  - PRODUCT QUALITY ISSUE [None]
